FAERS Safety Report 8993543 (Version 1)
Quarter: 2013Q1

REPORT INFORMATION
  Report Type: Spontaneous
  Country: JP (occurrence: JP)
  Receive Date: 20130102
  Receipt Date: 20130102
  Transmission Date: 20140127
  Serious: Yes (Other)
  Sender: FDA-Public Use
  Company Number: JP-MYLANLABS-2012S1026107

PATIENT
  Age: 75 Year
  Sex: Female
  Weight: 62 kg

DRUGS (4)
  1. REMIFENTANIL [Suspect]
     Indication: GENERAL ANAESTHESIA
     Dosage: 0.2 MICROG/KG/MIN
     Route: 041
  2. THIAMYLAL SODIUM [Suspect]
     Indication: GENERAL ANAESTHESIA
     Dosage: 125MG
     Route: 065
  3. SEVOFLURANE [Concomitant]
     Dosage: 3%
     Route: 065
  4. ROCURONIUM BROMIDE [Concomitant]
     Indication: MUSCLE RELAXANT THERAPY
     Dosage: 20MG
     Route: 065

REACTIONS (1)
  - Sinus arrest [Recovered/Resolved]
